FAERS Safety Report 10658146 (Version 2)
Quarter: 2014Q4

REPORT INFORMATION
  Report Type: Spontaneous
  Country: FR (occurrence: FR)
  Receive Date: 20141217
  Receipt Date: 20141223
  Transmission Date: 20150529
  Serious: Yes (Hospitalization)
  Sender: FDA-Public Use
  Company Number: FR-ASTRAZENECA-2014SE95483

PATIENT
  Age: 68 Year
  Sex: Female

DRUGS (15)
  1. IMOVANE [Suspect]
     Active Substance: ZOPICLONE
     Route: 048
     Dates: start: 20141031
  2. TARDYFERON [Concomitant]
     Active Substance: FERROUS SULFATE\FOLIC ACID
  3. LAROXYL [Suspect]
     Active Substance: AMITRIPTYLINE
     Indication: PAIN
     Dosage: 40 MG/ML
     Route: 065
  4. LYRICA [Suspect]
     Active Substance: PREGABALIN
     Indication: PAIN
     Route: 048
  5. LASILIX [Concomitant]
     Active Substance: FUROSEMIDE
  6. AVLOCARDYL [Concomitant]
     Active Substance: PROPRANOLOL HYDROCHLORIDE
  7. XEROQUEL [Suspect]
     Active Substance: QUETIAPINE FUMARATE
     Route: 048
     Dates: start: 20141031
  8. DOLIPRANE [Concomitant]
     Active Substance: ACETAMINOPHEN
  9. INEXIUM [Concomitant]
     Active Substance: ESOMEPRAZOLE
  10. LOVENOX [Concomitant]
     Active Substance: ENOXAPARIN SODIUM
  11. MEROPENEM. [Concomitant]
     Active Substance: MEROPENEM
  12. ATARAX [Suspect]
     Active Substance: HYDROXYZINE\HYDROXYZINE HYDROCHLORIDE
     Route: 048
     Dates: start: 20141031
  13. KARDEGIC [Concomitant]
     Active Substance: ASPIRIN LYSINE
  14. LOPERAMIDE BASE [Concomitant]
     Active Substance: LOPERAMIDE
  15. INSULINE [Concomitant]
     Active Substance: INSULIN NOS

REACTIONS (3)
  - Wrong patient received medication [Recovered/Resolved]
  - Somnolence [Recovered/Resolved]
  - Dysarthria [Recovered/Resolved]

NARRATIVE: CASE EVENT DATE: 20141031
